FAERS Safety Report 9103638 (Version 1)
Quarter: 2013Q1

REPORT INFORMATION
  Report Type: Spontaneous
  Country: US (occurrence: US)
  Receive Date: 20130219
  Receipt Date: 20130219
  Transmission Date: 20140127
  Serious: Yes (Hospitalization)
  Sender: FDA-Public Use
  Company Number: US-BAYER-2013-020382

PATIENT
  Age: 42 Year
  Sex: Female

DRUGS (7)
  1. YAZ [Suspect]
  2. BEYAZ [Suspect]
  3. GIANVI [Suspect]
  4. MORPHINE [Concomitant]
     Route: 042
  5. ZOFRAN [Concomitant]
     Route: 042
  6. TORADOL [Concomitant]
  7. ATIVAN [Concomitant]

REACTIONS (1)
  - Pulmonary embolism [None]
